FAERS Safety Report 9443709 (Version 1)
Quarter: 2013Q3

REPORT INFORMATION
  Report Type: Spontaneous
  Country: JP (occurrence: JP)
  Receive Date: 20130806
  Receipt Date: 20130806
  Transmission Date: 20140515
  Serious: Yes (Hospitalization, Other)
  Sender: FDA-Public Use
  Company Number: PHHY2013JP084389

PATIENT
  Sex: Male

DRUGS (3)
  1. DIOVAN [Suspect]
     Indication: HYPERTENSION
     Dosage: 80 MG, IN THE EVENING AFTER MEALS AILY
     Route: 048
  2. ADALAT [Concomitant]
     Indication: HYPERTENSION
     Dosage: 40 MG, DAILY, AFTER BREAKFAST
     Route: 048
  3. ADALAT [Concomitant]
     Dosage: EVERY 2 OR 3 DAYS

REACTIONS (6)
  - Sleep disorder [Not Recovered/Not Resolved]
  - Hypertension [Unknown]
  - Malaise [Unknown]
  - Motion sickness [Unknown]
  - Weight increased [Unknown]
  - Drug ineffective [Unknown]
